FAERS Safety Report 24401618 (Version 1)
Quarter: 2024Q4

REPORT INFORMATION
  Report Type: Spontaneous
  Country: US (occurrence: US)
  Receive Date: 20241007
  Receipt Date: 20241007
  Transmission Date: 20250115
  Serious: Yes (Death, Life-Threatening, Hospitalization)
  Sender: SANDOZ
  Company Number: US-MLMSERVICE-20240923-PI205421-00218-1

PATIENT
  Age: 64 Year
  Sex: Male

DRUGS (4)
  1. ADALIMUMAB [Suspect]
     Active Substance: ADALIMUMAB
     Indication: Rheumatoid arthritis
     Dosage: FIRST COURSE GIVEN 6 MONTHS PRIOR TO PRESENTATION, WITH A PLAN TO CONTINUE AND WAS RECEIVING ADALIMU
     Route: 065
  2. METHOTREXATE [Suspect]
     Active Substance: METHOTREXATE
     Indication: Rheumatoid arthritis
     Dosage: FIRST COURSE GIVEN 6 MONTHS PRIOR TO PRESENTATION, WITH A PLAN TO CONTINUE
     Route: 065
  3. PREDNISONE [Suspect]
     Active Substance: PREDNISONE
     Indication: Rheumatoid arthritis
     Dosage: RECEIVED INTERMITTENTLY, WITH THE LAST DOSE 8 MONTHS PRIOR
     Route: 065
  4. RITUXIMAB [Suspect]
     Active Substance: RITUXIMAB
     Indication: Rheumatoid arthritis
     Dosage: FIRST COURSE GIVEN 6 MONTHS PRIOR TO PRESENTATION, WITH A PLAN TO CONTINUE
     Route: 065

REACTIONS (2)
  - Pulmonary mucormycosis [Fatal]
  - Acute respiratory failure [Fatal]
